FAERS Safety Report 13708202 (Version 1)
Quarter: 2017Q2

REPORT INFORMATION
  Report Type: Spontaneous
  Country: FR (occurrence: FR)
  Receive Date: 20170630
  Receipt Date: 20170630
  Transmission Date: 20170830
  Serious: Yes (Hospitalization, Other)
  Sender: FDA-Public Use
  Company Number: FR-BAXTER-2017BAX026417

PATIENT
  Age: 27 Year
  Sex: Female
  Weight: 60 kg

DRUGS (20)
  1. BACTRIM [Suspect]
     Active Substance: SULFAMETHOXAZOLE\TRIMETHOPRIM
     Indication: PRODUCT USED FOR UNKNOWN INDICATION
     Route: 065
  2. IMUREL [Suspect]
     Active Substance: AZATHIOPRINE SODIUM
     Route: 065
  3. UROMITEXAN 5 G/50 ML, SOLUTION INJECTABLE POUR PERFUSION EN FLACON [Suspect]
     Active Substance: MESNA
     Indication: PRODUCT USED FOR UNKNOWN INDICATION
     Route: 065
  4. METHOTREXATE. [Suspect]
     Active Substance: METHOTREXATE
     Indication: INFLAMMATION
     Route: 065
     Dates: start: 201503
  5. METHOTREXATE. [Suspect]
     Active Substance: METHOTREXATE
     Dosage: ON DAY4 OF EMBRYONIC LIFE
     Route: 065
     Dates: start: 20160813
  6. METHOTREXATE. [Suspect]
     Active Substance: METHOTREXATE
     Dosage: ON DAY32 OF EMBRYONIC LIFE
     Route: 065
     Dates: start: 20160910
  7. IMUREL [Suspect]
     Active Substance: AZATHIOPRINE SODIUM
     Indication: INFLAMMATION
     Route: 065
     Dates: start: 2013
  8. ENDOXAN 1000 MG, POUDRE POUR SOLUTION INJECTABLE [Suspect]
     Active Substance: CYCLOPHOSPHAMIDE
     Dosage: SECOND COURSE, 900MG, INFUSION
     Route: 042
     Dates: start: 20161219
  9. METHOTREXATE. [Suspect]
     Active Substance: METHOTREXATE
     Dosage: ON DAY11 OF EMBRYONIC LIFE
     Route: 065
     Dates: start: 20160820
  10. METHOTREXATE. [Suspect]
     Active Substance: METHOTREXATE
     Dosage: ON DAY25 OF EMBRYONIC LIFE
     Route: 065
     Dates: start: 20160903
  11. DIFFU K [Suspect]
     Active Substance: POTASSIUM CHLORIDE
     Indication: PRODUCT USED FOR UNKNOWN INDICATION
     Route: 065
  12. PREDNISONE. [Suspect]
     Active Substance: PREDNISONE
     Indication: INFLAMMATION
     Route: 065
  13. ENDOXAN 1000 MG, POUDRE POUR SOLUTION INJECTABLE [Suspect]
     Active Substance: CYCLOPHOSPHAMIDE
     Indication: INFLAMMATION
     Dosage: FIRST COURSE, 900MG, INFUSION
     Route: 042
     Dates: start: 20161202
  14. ENDOXAN 1000 MG, POUDRE POUR SOLUTION INJECTABLE [Suspect]
     Active Substance: CYCLOPHOSPHAMIDE
     Dosage: FIFTH COURSE, 900MG, INFUSION
     Route: 042
     Dates: start: 20170314
  15. ENDOXAN 1000 MG, POUDRE POUR SOLUTION INJECTABLE [Suspect]
     Active Substance: CYCLOPHOSPHAMIDE
     Dosage: FOURTH COURSE, 900MG, INFUSION
     Route: 042
     Dates: start: 20170210
  16. REMICADE [Concomitant]
     Active Substance: INFLIXIMAB
     Indication: PRODUCT USED FOR UNKNOWN INDICATION
     Dosage: 2 COURSES
     Route: 065
     Dates: start: 2014
  17. ENDOXAN 1000 MG, POUDRE POUR SOLUTION INJECTABLE [Suspect]
     Active Substance: CYCLOPHOSPHAMIDE
     Dosage: THIRD COURSE, 900MG, INFUSION
     Route: 042
     Dates: start: 20170106
  18. METHOTREXATE. [Suspect]
     Active Substance: METHOTREXATE
     Dosage: ON DAY18 OF EMBRYONIC LIFE
     Route: 065
     Dates: start: 20160827
  19. SPECIAFOLDINE [Suspect]
     Active Substance: FOLIC ACID
     Indication: PRODUCT USED FOR UNKNOWN INDICATION
     Route: 065
  20. LANSOPRAZOLE. [Suspect]
     Active Substance: LANSOPRAZOLE
     Indication: PRODUCT USED FOR UNKNOWN INDICATION
     Route: 065

REACTIONS (12)
  - Hypoacusis [Unknown]
  - Arthritis [Unknown]
  - Exposure during pregnancy [Recovered/Resolved]
  - Premature delivery [Recovered/Resolved]
  - Mouth ulceration [Unknown]
  - Abdominal pain [Unknown]
  - Dyspnoea exertional [Unknown]
  - Tracheal stenosis [Unknown]
  - Diarrhoea [Unknown]
  - Premature labour [Recovered/Resolved]
  - Rectal haemorrhage [Unknown]
  - Palatal ulcer [Unknown]

NARRATIVE: CASE EVENT DATE: 201609
